FAERS Safety Report 13910548 (Version 1)
Quarter: 2017Q3

REPORT INFORMATION
  Report Type: Spontaneous
  Country: US (occurrence: US)
  Receive Date: 20170828
  Receipt Date: 20170828
  Transmission Date: 20171127
  Serious: Yes (Other)
  Sender: FDA-Public Use
  Company Number: US-SA-2017SA152095

PATIENT
  Age: 70 Year
  Sex: Male

DRUGS (3)
  1. PERCOCET [Concomitant]
     Active Substance: ACETAMINOPHEN\OXYCODONE HYDROCHLORIDE
     Indication: ANALGESIC THERAPY
  2. DULCOLAX NOS [Suspect]
     Active Substance: BISACODYL OR DOCUSATE SODIUM
     Indication: CONSTIPATION
     Route: 065
  3. DULCOLAX NOS [Suspect]
     Active Substance: BISACODYL OR DOCUSATE SODIUM
     Indication: CONSTIPATION
     Route: 054

REACTIONS (8)
  - Flatulence [Unknown]
  - Asthenia [Unknown]
  - Drug dependence [Unknown]
  - Malaise [Unknown]
  - Anorectal discomfort [Unknown]
  - Rectal spasm [Unknown]
  - Anxiety [Unknown]
  - Drug ineffective [Unknown]
